FAERS Safety Report 23079177 (Version 2)
Quarter: 2024Q1

REPORT INFORMATION
  Report Type: Spontaneous
  Country: DE (occurrence: DE)
  Receive Date: 20231018
  Receipt Date: 20240118
  Transmission Date: 20240410
  Serious: Yes (Hospitalization, Other)
  Sender: FDA-Public Use
  Company Number: DE-VIIV HEALTHCARE LIMITED-DE2023EME135604

PATIENT

DRUGS (7)
  1. ESTRADIOL [Suspect]
     Active Substance: ESTRADIOL
     Dosage: 2 MG, 1X/DAY (QD)
  2. FERRO-SANOL DUODENAL [Suspect]
     Active Substance: FERROUS GLYCINE SULFATE
     Dosage: 100 MG, 1X/DAY (QD)
  3. DOVATO [Suspect]
     Active Substance: DOLUTEGRAVIR SODIUM\LAMIVUDINE
     Dosage: UNK UNK, 1X/DAY (QD (50/300 MG))
  4. METAMIZOLE [Suspect]
     Active Substance: METAMIZOLE
     Dosage: UNK (500 MG/ML)
  5. PANCRELIPASE [Suspect]
     Active Substance: PANCRELIPASE
     Dosage: UNK UNK, CYCLIC (TID, 40000 U)
  6. CANDESARTAN CILEXETIL\HYDROCHLOROTHIAZIDE [Suspect]
     Active Substance: CANDESARTAN CILEXETIL\HYDROCHLOROTHIAZIDE
     Dosage: UNK UNK, 1X/DAY (QD (16/12.5 MG))
  7. PANTOPRAZOLE SODIUM [Suspect]
     Active Substance: PANTOPRAZOLE SODIUM
     Dosage: 40 MG, 2X/DAY (BID)

REACTIONS (6)
  - General physical health deterioration [Unknown]
  - Helicobacter infection [Unknown]
  - Liver function test increased [Unknown]
  - Helicobacter gastritis [Unknown]
  - Pyrexia [Unknown]
  - Autoimmune hepatitis [Unknown]
